FAERS Safety Report 4531216-1 (Version None)
Quarter: 2004Q4

REPORT INFORMATION
  Report Type: 
  Country: None (occurrence: None)
  Receive Date: 20041206
  Receipt Date: 20040902
  Transmission Date: 20050328
  Serious: No
  Sender: FDA-Public Use
  Company Number: US_0409105238

PATIENT
  Sex: Male

DRUGS (2)
  1. CYMBALTA [Suspect]
  2. WELLBUTRIN [Concomitant]

REACTIONS (2)
  - DYSURIA [None]
  - URINARY HESITATION [None]
